FAERS Safety Report 10168752 (Version 1)
Quarter: 2014Q2

REPORT INFORMATION
  Report Type: Spontaneous
  Country: GB (occurrence: GB)
  Receive Date: 20140513
  Receipt Date: 20140513
  Transmission Date: 20141212
  Serious: Yes (Life-Threatening, Hospitalization)
  Sender: FDA-Public Use
  Company Number: PHHY2014GB057273

PATIENT
  Age: 86 Year
  Sex: Female
  Weight: 50 kg

DRUGS (8)
  1. METHOTREXATE [Suspect]
     Indication: RHEUMATOID ARTHRITIS
     Dosage: 10 MG
     Route: 048
     Dates: end: 20140416
  2. ALENDRONIC ACID [Concomitant]
  3. AMLODIPINE [Concomitant]
  4. ADCAL-D3 [Concomitant]
  5. BENDROFLUMETHIAZIDE [Concomitant]
  6. CHLORAMPHENICOL [Concomitant]
  7. CO-DYDRAMOL [Concomitant]
  8. FOLIC ACID [Concomitant]

REACTIONS (3)
  - Haemorrhage intracranial [Recovering/Resolving]
  - Pancytopenia [Recovering/Resolving]
  - Neutropenic sepsis [Recovering/Resolving]
